FAERS Safety Report 10673945 (Version 1)
Quarter: 2014Q4

REPORT INFORMATION
  Report Type: Spontaneous
  Country: US (occurrence: US)
  Receive Date: 20141224
  Receipt Date: 20141224
  Transmission Date: 20150529
  Serious: No
  Sender: FDA-Public Use
  Company Number: US-SHIRE-US201408873

PATIENT
  Age: 6 Year
  Sex: Male
  Weight: 23.58 kg

DRUGS (1)
  1. ADDERALL XR [Suspect]
     Active Substance: AMPHETAMINE ASPARTATE\AMPHETAMINE SULFATE\DEXTROAMPHETAMINE SACCHARATE\DEXTROAMPHETAMINE SULFATE
     Indication: ATTENTION DEFICIT/HYPERACTIVITY DISORDER
     Dosage: 15 MG, 1X/DAY:QD
     Route: 048
     Dates: start: 201404, end: 20141209

REACTIONS (11)
  - Psychomotor hyperactivity [Recovered/Resolved]
  - Impulsive behaviour [Not Recovered/Not Resolved]
  - Abnormal behaviour [Recovered/Resolved]
  - Nasopharyngitis [Recovered/Resolved]
  - Tearfulness [Not Recovered/Not Resolved]
  - Product quality issue [Unknown]
  - Negativism [Not Recovered/Not Resolved]
  - Decreased appetite [Not Recovered/Not Resolved]
  - Condition aggravated [Not Recovered/Not Resolved]
  - Drug ineffective [Not Recovered/Not Resolved]
  - Conduct disorder [Not Recovered/Not Resolved]

NARRATIVE: CASE EVENT DATE: 201404
